FAERS Safety Report 10714067 (Version 2)
Quarter: 2015Q1

REPORT INFORMATION
  Report Type: Spontaneous
  Country: DE (occurrence: DE)
  Receive Date: 20150115
  Receipt Date: 20150327
  Transmission Date: 20150721
  Serious: Yes (Hospitalization)
  Sender: FDA-Public Use
  Company Number: PHHY2015DE004330

PATIENT
  Sex: Male

DRUGS (2)
  1. BISOPROLOL [Concomitant]
     Active Substance: BISOPROLOL
     Indication: HYPERTENSION
     Dosage: 5 MG, QD
     Route: 048
  2. TASIGNA [Suspect]
     Active Substance: NILOTINIB
     Indication: CHRONIC MYELOID LEUKAEMIA
     Dosage: 600 MG, QD (150 MG X 4, DAILY)
     Route: 048
     Dates: end: 20150202

REACTIONS (5)
  - Pain in extremity [Unknown]
  - Hyperhidrosis [Unknown]
  - Fatigue [Unknown]
  - Myocardial infarction [Recovered/Resolved with Sequelae]
  - Angina pectoris [Unknown]

NARRATIVE: CASE EVENT DATE: 20141028
